FAERS Safety Report 8979237 (Version 1)
Quarter: 2012Q4

REPORT INFORMATION
  Report Type: 
  Country: CH (occurrence: CH)
  Receive Date: 20121221
  Receipt Date: 20121221
  Transmission Date: 20130627
  Serious: Yes (Hospitalization)
  Sender: FDA-Public Use
  Company Number: CH-GLAXOSMITHKLINE-B0854468A

PATIENT
  Age: 82 Year
  Sex: Female
  Weight: 66 kg

DRUGS (8)
  1. ZINACEF [Suspect]
     Indication: PROPHYLAXIS
     Route: 042
     Dates: start: 20120905, end: 20120905
  2. XARELTO [Suspect]
     Indication: ARRHYTHMIA SUPRAVENTRICULAR
     Dosage: 10MG Per day
     Route: 048
     Dates: start: 20120907, end: 20120908
  3. CITALOPRAM [Suspect]
     Indication: ANXIETY DISORDER
     Dosage: 20MG Per day
     Route: 065
  4. DAFALGAN [Suspect]
     Indication: PAIN
     Dosage: 1000MG Four times per day
     Route: 048
     Dates: start: 20120905, end: 20120912
  5. NOVALGINE [Suspect]
     Indication: PRODUCT USED FOR UNKNOWN INDICATION
     Dosage: 1G Four times per day
     Route: 048
     Dates: start: 20120905, end: 20120906
  6. METOPROLOL [Concomitant]
     Indication: ESSENTIAL HYPERTENSION
     Dosage: 50MG Per day
     Route: 048
  7. CO-RENITEN [Concomitant]
     Indication: ESSENTIAL HYPERTENSION
     Dosage: 20MG Per day
  8. FELODIPINE [Concomitant]
     Indication: ESSENTIAL HYPERTENSION
     Dosage: 5MG Per day
     Route: 048

REACTIONS (4)
  - Post procedural haemorrhage [Recovered/Resolved]
  - Arthralgia [None]
  - Hypertension [None]
  - Nervous system disorder [None]
